FAERS Safety Report 6620167-4 (Version None)
Quarter: 2010Q1

REPORT INFORMATION
  Report Type: 
  Country: None (occurrence: None)
  Receive Date: 20100223
  Receipt Date: 20091124
  Transmission Date: 20100710
  Serious: No
  Sender: FDA-Public Use
  Company Number: 003452

PATIENT
  Sex: Female

DRUGS (1)
  1. CIMZIA [Suspect]
     Dates: start: 20090714

REACTIONS (3)
  - ABDOMINAL PAIN [None]
  - BACK PAIN [None]
  - INJECTION SITE HAEMATOMA [None]
